FAERS Safety Report 8328543-9 (Version None)
Quarter: 2012Q2

REPORT INFORMATION
  Report Type: 
  Country: None (occurrence: None)
  Receive Date: 20120502
  Receipt Date: 20100729
  Transmission Date: 20120825
  Serious: No
  Sender: FDA-Public Use
  Company Number: US-TEVA-2010003984

PATIENT
  Age: 71 Year
  Sex: Female
  Weight: 69.008 kg

DRUGS (6)
  1. NUVIGIL [Suspect]
     Indication: ASTHENIA
     Dosage: 150 MILLIGRAM;
     Route: 048
     Dates: start: 20100728
  2. LEVOTHYROXINE SODIUM [Concomitant]
  3. VICODIN [Concomitant]
  4. IRON [Concomitant]
  5. LANSOPRAZOLE [Concomitant]
  6. LOPRESSOR [Concomitant]

REACTIONS (2)
  - INSOMNIA [None]
  - NERVOUSNESS [None]
